FAERS Safety Report 4378752-9 (Version None)
Quarter: 2004Q2

REPORT INFORMATION
  Report Type: 
  Country: None (occurrence: None)
  Receive Date: 20040609
  Receipt Date: 20040524
  Transmission Date: 20050107
  Serious: Yes (Hospitalization)
  Sender: FDA-Public Use
  Company Number: USA040568343

PATIENT
  Age: 91 Year
  Sex: Male

DRUGS (2)
  1. FORTEO [Suspect]
     Indication: BACK PAIN
     Dosage: 20 UG/1 DAY
     Dates: start: 20040301
  2. FORTEO [Suspect]
     Indication: SPINAL FRACTURE
     Dosage: 20 UG/1 DAY
     Dates: start: 20040301

REACTIONS (4)
  - ASTHENIA [None]
  - CARDIAC VALVE DISEASE [None]
  - PHARMACEUTICAL PRODUCT COMPLAINT [None]
  - RESPIRATORY DISORDER [None]
